FAERS Safety Report 6498805-9 (Version None)
Quarter: 2009Q4

REPORT INFORMATION
  Report Type: 
  Country: None (occurrence: None)
  Receive Date: 20091127
  Receipt Date: 20081201
  Transmission Date: 20100525
  Serious: Yes (Disabling)
  Sender: FDA-Public Use
  Company Number: WAES 0812USA00506

PATIENT
  Age: 75 Year
  Sex: Female

DRUGS (4)
  1. FOSAMAX [Suspect]
     Indication: OSTEOPOROSIS
     Dosage: 10 MG/PO; 70 MG/WKY/PO; DAILY/PO; Q2W/PO
     Route: 048
     Dates: start: 19980625, end: 20010607
  2. FOSAMAX [Suspect]
     Indication: OSTEOPOROSIS
     Dosage: 10 MG/PO; 70 MG/WKY/PO; DAILY/PO; Q2W/PO
     Route: 048
     Dates: start: 20021109, end: 20070920
  3. FOSAMAX [Suspect]
     Indication: OSTEOPOROSIS
     Dosage: 10 MG/PO; 70 MG/WKY/PO; DAILY/PO; Q2W/PO
     Route: 048
     Dates: start: 20030414
  4. FOSAMAX [Suspect]
     Indication: OSTEOPOROSIS
     Dosage: 10 MG/PO; 70 MG/WKY/PO; DAILY/PO; Q2W/PO
     Route: 048
     Dates: start: 20070920

REACTIONS (23)
  - ABNORMAL BEHAVIOUR [None]
  - ADVERSE DRUG REACTION [None]
  - DRUG HYPERSENSITIVITY [None]
  - DYSPEPSIA [None]
  - GASTRITIS [None]
  - GASTROOESOPHAGEAL REFLUX DISEASE [None]
  - GLAUCOMA [None]
  - HIATUS HERNIA [None]
  - HYPERLIPIDAEMIA [None]
  - HYPERTENSION [None]
  - INAPPROPRIATE SCHEDULE OF DRUG ADMINISTRATION [None]
  - LABYRINTHITIS [None]
  - NAUSEA [None]
  - OEDEMA PERIPHERAL [None]
  - OESOPHAGITIS [None]
  - OSTEONECROSIS [None]
  - PERIODONTAL DISEASE [None]
  - REFLUX GASTRITIS [None]
  - SWELLING [None]
  - TOOTH ABSCESS [None]
  - URINARY TRACT INFECTION [None]
  - VOMITING [None]
  - WEIGHT INCREASED [None]
